FAERS Safety Report 5825963-9 (Version None)
Quarter: 2008Q3

REPORT INFORMATION
  Report Type: 
  Country: None (occurrence: None)
  Receive Date: 20080729
  Receipt Date: 20080725
  Transmission Date: 20090109
  Serious: Yes (Death, Hospitalization)
  Sender: FDA-Public Use
  Company Number: PHFR2008IE01292

PATIENT
  Sex: Female

DRUGS (19)
  1. CLOZARIL [Suspect]
     Indication: SCHIZOPHRENIA
     Dosage: 500MG DAILY
     Route: 048
     Dates: start: 20050812
  2. ABILIFY [Concomitant]
     Indication: SCHIZOPHRENIA
     Dosage: 20MG / DAY
     Route: 048
     Dates: start: 20061212
  3. ALPRAZOLAM [Concomitant]
     Indication: ABNORMAL BEHAVIOUR
     Dosage: 0.25 MG, TID
     Route: 048
     Dates: start: 20040101
  4. CHLORPROMAZINE [Concomitant]
     Indication: SCHIZOPHRENIA
     Dosage: 100MG / DAY
     Route: 048
     Dates: end: 20080417
  5. DIFENE [Concomitant]
     Indication: PAIN
     Route: 065
     Dates: start: 20080401
  6. FOSAMAX [Concomitant]
     Indication: OSTEOPOROSIS
     Dosage: 70 MG, QW
     Dates: start: 20030101
  7. GALFER [Concomitant]
     Indication: IRON DEFICIENCY ANAEMIA
     Route: 065
     Dates: start: 20010101
  8. LANSOPRAZOLE [Concomitant]
     Indication: GASTRITIS
     Dosage: 30 MG, QD
     Route: 065
  9. PULMICORT-100 [Concomitant]
     Indication: CHRONIC OBSTRUCTIVE PULMONARY DISEASE
     Dosage: 0.5 MG, BID
  10. ALBUTEROL [Concomitant]
     Indication: CHRONIC OBSTRUCTIVE PULMONARY DISEASE
     Dosage: 2.5 MG, BID
  11. SPIRIVA [Concomitant]
     Indication: CHRONIC OBSTRUCTIVE PULMONARY DISEASE
     Dosage: 18 UG, QD
     Dates: start: 20060101
  12. SERETIDE [Concomitant]
     Indication: CHRONIC OBSTRUCTIVE PULMONARY DISEASE
     Dosage: 500 UG, BID
  13. MOVICOL [Concomitant]
     Indication: CONSTIPATION
     Dosage: 2 SACHETS
     Route: 065
     Dates: start: 20050101
  14. LACTULOSE [Concomitant]
     Indication: CONSTIPATION
     Dosage: 15 ML, UNK
     Route: 048
  15. MICROLAX [Concomitant]
     Indication: CONSTIPATION
  16. OXYGEN [Concomitant]
     Indication: CHRONIC OBSTRUCTIVE PULMONARY DISEASE
  17. PROCHLORPERAZINE [Concomitant]
     Dosage: 12.5 MG, UNK
     Dates: start: 20080417
  18. MICROLAX [Concomitant]
     Dosage: UNK
     Dates: start: 20080417
  19. PHOSPHATE ENEMA [Concomitant]
     Dosage: UNK
     Dates: start: 20080417

REACTIONS (8)
  - BLOOD PRESSURE DIASTOLIC DECREASED [None]
  - CHRONIC OBSTRUCTIVE PULMONARY DISEASE [None]
  - DYSPNOEA [None]
  - INTESTINAL OBSTRUCTION [None]
  - MALAISE [None]
  - OXYGEN SATURATION DECREASED [None]
  - RENAL FAILURE ACUTE [None]
  - VOMITING [None]
